FAERS Safety Report 8226406-0 (Version None)
Quarter: 2012Q1

REPORT INFORMATION
  Report Type: 
  Country: None (occurrence: None)
  Receive Date: 20120307
  Receipt Date: 20100803
  Transmission Date: 20120608
  Serious: Yes (Other)
  Sender: FDA-Public Use
  Company Number: PHHY2010US50799

PATIENT
  Age: 85 Year
  Sex: Female

DRUGS (1)
  1. AFINITOR [Suspect]
     Dosage: 5 MG, QD, ORAL
     Route: 048
     Dates: start: 20100201, end: 20100701

REACTIONS (1)
  - WEIGHT DECREASED [None]
